FAERS Safety Report 16096164 (Version 5)
Quarter: 2019Q2

REPORT INFORMATION
  Report Type: Spontaneous
  Country: JP (occurrence: JP)
  Receive Date: 20190320
  Receipt Date: 20190617
  Transmission Date: 20190711
  Serious: Yes (Life-Threatening)
  Sender: FDA-Public Use
  Company Number: JP-EISAI MEDICAL RESEARCH-EC-2019-053570

PATIENT
  Age: 63 Year
  Sex: Male
  Weight: 85 kg

DRUGS (3)
  1. LENVIMA [Suspect]
     Active Substance: LENVATINIB
     Indication: HEPATOCELLULAR CARCINOMA
     Route: 048
     Dates: start: 20190122, end: 20190228
  2. LENVIMA [Suspect]
     Active Substance: LENVATINIB
     Route: 048
     Dates: start: 20190402, end: 20190409
  3. LENVIMA [Suspect]
     Active Substance: LENVATINIB
     Dosage: 4 DAYS ON/3 DAYS OFF REGIMEN (DOSE UNKNOWN)
     Route: 048
     Dates: start: 2019, end: 2019

REACTIONS (1)
  - Hepatic failure [Not Recovered/Not Resolved]

NARRATIVE: CASE EVENT DATE: 201902
